FAERS Safety Report 25124728 (Version 1)
Quarter: 2025Q1

REPORT INFORMATION
  Report Type: Spontaneous
  Country: BR (occurrence: BR)
  Receive Date: 20250326
  Receipt Date: 20250326
  Transmission Date: 20250409
  Serious: Yes (Other)
  Sender: SANDOZ
  Company Number: BR-002147023-NVSC2025BR049058

PATIENT
  Age: 82 Year
  Sex: Female

DRUGS (2)
  1. EXELON [Suspect]
     Active Substance: RIVASTIGMINE TARTRATE
     Indication: Dementia
     Dosage: 13.3 MG, QD, PATCH, EXTENDED RELEASE, (PATCH 15))
     Route: 062
  2. EXELON [Suspect]
     Active Substance: RIVASTIGMINE TARTRATE
     Indication: Dementia
     Dosage: 9.5 MG, QD, PATCH, EXTENDED RELEASE ( PATCH 10)
     Route: 062
     Dates: start: 20200601

REACTIONS (9)
  - Dementia [Unknown]
  - Irritability [Unknown]
  - Emotional disorder [Unknown]
  - Suspiciousness [Unknown]
  - Pruritus [Unknown]
  - Delirium [Unknown]
  - Product use issue [Unknown]
  - Off label use [Unknown]
  - Product adhesion issue [Unknown]
